FAERS Safety Report 9846432 (Version 3)
Quarter: 2014Q1

REPORT INFORMATION
  Report Type: Spontaneous
  Country: US (occurrence: None)
  Receive Date: 20140122
  Receipt Date: 20140306
  Transmission Date: 20141002
  Serious: Yes (Hospitalization)
  Sender: FDA-Public Use
  Company Number: US-000906

PATIENT
  Age: 43 Year
  Sex: Male

DRUGS (7)
  1. GATTEX [Suspect]
     Indication: SHORT-BOWEL SYNDROME
     Route: 058
     Dates: start: 20130907, end: 201312
  2. SOLUTIONS FOR PARENTAL NUTRITION [Concomitant]
  3. NEXIUM /01479302/ [Concomitant]
  4. VITAMIN D NOS [Concomitant]
  5. GABAPENTIN [Concomitant]
  6. PERCOCET/00867901/ [Concomitant]
  7. LASIX /00032601/ [Concomitant]

REACTIONS (5)
  - Swelling [None]
  - Weight decreased [None]
  - Generalised oedema [None]
  - Myocardial infarction [None]
  - Fluid overload [None]
